FAERS Safety Report 24668144 (Version 1)
Quarter: 2024Q4

REPORT INFORMATION
  Report Type: Spontaneous
  Country: JP (occurrence: JP)
  Receive Date: 20241127
  Receipt Date: 20241127
  Transmission Date: 20250115
  Serious: Yes (Hospitalization)
  Sender: BOEHRINGER INGELHEIM
  Company Number: JP-NBI-2024-BI-059022

PATIENT
  Age: 9 Decade
  Sex: Female

DRUGS (2)
  1. OFEV [Suspect]
     Active Substance: NINTEDANIB
     Indication: Interstitial lung disease
     Route: 048
     Dates: start: 20240708, end: 20240905
  2. OFEV [Suspect]
     Active Substance: NINTEDANIB
     Indication: Rheumatoid arthritis

REACTIONS (3)
  - Mallory-Weiss syndrome [Recovered/Resolved]
  - Erythema multiforme [Unknown]
  - Vomiting [Recovered/Resolved]

NARRATIVE: CASE EVENT DATE: 20240730
